FAERS Safety Report 10176313 (Version 1)
Quarter: 2014Q2

REPORT INFORMATION
  Report Type: Spontaneous
  Country: US (occurrence: US)
  Receive Date: 20140516
  Receipt Date: 20140516
  Transmission Date: 20141212
  Serious: No
  Sender: FDA-Public Use
  Company Number: US-PFIZER INC-2014134103

PATIENT
  Age: 83 Year
  Sex: Male
  Weight: 63.49 kg

DRUGS (1)
  1. LYRICA [Suspect]
     Indication: DIABETIC NEUROPATHY
     Dosage: [75MG IN THE MORNING AND 225 MG IN THE NIGHT], 2X/DAY
     Dates: end: 201402

REACTIONS (5)
  - Drug withdrawal syndrome [Recovered/Resolved]
  - Anxiety [Recovered/Resolved]
  - Depression [Recovered/Resolved]
  - Insomnia [Recovered/Resolved]
  - Weight decreased [Recovering/Resolving]
